FAERS Safety Report 21215706 (Version 3)
Quarter: 2022Q3

REPORT INFORMATION
  Report Type: Spontaneous
  Country: US (occurrence: US)
  Receive Date: 20220816
  Receipt Date: 20220823
  Transmission Date: 20221027
  Serious: No
  Sender: FDA-Public Use
  Company Number: US-PFIZER INC-202201051679

PATIENT
  Age: 59 Year
  Sex: Male

DRUGS (1)
  1. PAXLOVID [Suspect]
     Active Substance: NIRMATRELVIR\RITONAVIR
     Indication: COVID-19 treatment
     Dosage: UNK
     Dates: start: 20220808, end: 202208

REACTIONS (4)
  - Malaise [Unknown]
  - Visual impairment [Unknown]
  - Dysgeusia [Unknown]
  - Product packaging difficult to open [Unknown]
